FAERS Safety Report 20378637 (Version 1)
Quarter: 2022Q1

REPORT INFORMATION
  Report Type: Spontaneous
  Country: FR (occurrence: FR)
  Receive Date: 20220126
  Receipt Date: 20220126
  Transmission Date: 20220423
  Serious: Yes (Congenital Anomaly)
  Sender: FDA-Public Use
  Company Number: FR-ABBVIE-22K-056-4249052-00

PATIENT
  Sex: Female

DRUGS (2)
  1. VALPROIC ACID [Suspect]
     Active Substance: VALPROIC ACID
     Indication: Maternal exposure timing unspecified
     Route: 064
  2. ALEPSAL [Concomitant]
     Indication: Product used for unknown indication

REACTIONS (4)
  - Clinodactyly [Not Recovered/Not Resolved]
  - Foot deformity [Not Recovered/Not Resolved]
  - Learning disability [Not Recovered/Not Resolved]
  - Foetal exposure during pregnancy [Unknown]

NARRATIVE: CASE EVENT DATE: 20070507
